FAERS Safety Report 15755457 (Version 2)
Quarter: 2019Q1

REPORT INFORMATION
  Report Type: Report from Study
  Country: US (occurrence: US)
  Receive Date: 20181224
  Receipt Date: 20190214
  Transmission Date: 20190417
  Serious: No
  Sender: FDA-Public Use
  Company Number: US-IPSEN BIOPHARMACEUTICALS, INC.-2018-19353

PATIENT
  Age: 7 Year
  Sex: Male
  Weight: 19 kg

DRUGS (9)
  1. DYSPORT [Suspect]
     Active Substance: ABOBOTULINUMTOXINA
     Indication: MUSCLE SPASTICITY
  2. ONFI [Concomitant]
     Active Substance: CLOBAZAM
     Indication: SEIZURE
     Dates: start: 2013
  3. DYSPORT [Suspect]
     Active Substance: ABOBOTULINUMTOXINA
     Indication: MUSCLE SPASTICITY
     Dosage: 500 UNITS
     Dates: start: 20180410, end: 20180410
  4. DYSPORT [Suspect]
     Active Substance: ABOBOTULINUMTOXINA
     Indication: MUSCLE SPASTICITY
  5. DYSPORT [Suspect]
     Active Substance: ABOBOTULINUMTOXINA
     Indication: MUSCLE SPASTICITY
  6. DYSPORT [Suspect]
     Active Substance: ABOBOTULINUMTOXINA
     Indication: OFF LABEL USE
  7. TOPAMAX [Concomitant]
     Active Substance: TOPIRAMATE
     Indication: SEIZURE
     Dates: start: 2012
  8. ONFI [Concomitant]
     Active Substance: CLOBAZAM
     Dates: start: 2013
  9. BACLOFEN. [Concomitant]
     Active Substance: BACLOFEN
     Indication: MUSCLE SPASTICITY
     Route: 037
     Dates: start: 20170613

REACTIONS (3)
  - Bronchitis [Recovered/Resolved]
  - Off label use [Unknown]
  - Joint dislocation [Unknown]

NARRATIVE: CASE EVENT DATE: 20180410
